FAERS Safety Report 10501270 (Version 2)
Quarter: 2014Q4

REPORT INFORMATION
  Report Type: Spontaneous
  Country: IT (occurrence: IT)
  Receive Date: 20141007
  Receipt Date: 20141013
  Transmission Date: 20150528
  Serious: Yes (Other)
  Sender: FDA-Public Use
  Company Number: IT-JNJFOC-20141000246

PATIENT
  Age: 67 Year
  Sex: Female

DRUGS (13)
  1. SIMVASTATIN. [Concomitant]
     Active Substance: SIMVASTATIN
     Indication: HYPERCHOLESTEROLAEMIA
     Route: 048
     Dates: start: 20130507, end: 20140507
  2. EN [Suspect]
     Active Substance: DELORAZEPAM
     Indication: ANXIETY
     Route: 048
  3. EUCREAS [Concomitant]
     Active Substance: METFORMIN HYDROCHLORIDE\VILDAGLIPTIN
     Indication: TYPE 2 DIABETES MELLITUS
     Route: 048
     Dates: start: 20130507, end: 20140507
  4. SERENASE [Suspect]
     Active Substance: HALOPERIDOL
     Indication: DELIRIUM
     Route: 048
  5. SERENASE [Suspect]
     Active Substance: HALOPERIDOL
     Indication: DELIRIUM
     Route: 048
  6. VENTOLIN [Concomitant]
     Active Substance: ALBUTEROL SULFATE
     Indication: ASTHMA
     Route: 055
     Dates: start: 20130507, end: 20140507
  7. EN [Suspect]
     Active Substance: DELORAZEPAM
     Indication: ANXIETY
     Route: 048
  8. LASIX [Concomitant]
     Active Substance: FUROSEMIDE
     Indication: PRODUCT USED FOR UNKNOWN INDICATION
     Route: 048
     Dates: start: 20130507, end: 20140507
  9. SERENASE [Suspect]
     Active Substance: HALOPERIDOL
     Indication: DELIRIUM
     Route: 048
     Dates: end: 20140506
  10. NAPRILENE [Concomitant]
     Active Substance: ENALAPRIL MALEATE
     Indication: HYPERTENSION
     Route: 048
     Dates: start: 20130507, end: 20140507
  11. EN [Suspect]
     Active Substance: DELORAZEPAM
     Indication: ANXIETY
     Route: 048
     Dates: end: 20140506
  12. METFORAL [Concomitant]
     Active Substance: METFORMIN HYDROCHLORIDE
     Indication: TYPE 2 DIABETES MELLITUS
     Route: 048
     Dates: start: 20130507, end: 20140507
  13. CLENIL COMPOSITUM [Concomitant]
     Indication: ASTHMA
     Route: 055
     Dates: start: 20130507, end: 20140507

REACTIONS (4)
  - Mental impairment [Unknown]
  - General physical health deterioration [Unknown]
  - Mobility decreased [Recovering/Resolving]
  - Sedation [Recovering/Resolving]

NARRATIVE: CASE EVENT DATE: 20140507
